FAERS Safety Report 18394120 (Version 1)
Quarter: 2020Q4

REPORT INFORMATION
  Report Type: Spontaneous
  Country: US (occurrence: US)
  Receive Date: 20201016
  Receipt Date: 20201016
  Transmission Date: 20210114
  Serious: Yes (Other)
  Sender: FDA-Public Use
  Company Number: US-TEVA-2020-US-1839233

PATIENT

DRUGS (2)
  1. AMOXIL [Suspect]
     Active Substance: AMOXICILLIN
     Route: 065
  2. AMOXICILLIN. [Suspect]
     Active Substance: AMOXICILLIN
     Route: 065

REACTIONS (10)
  - Rash macular [Unknown]
  - Feeling of body temperature change [Unknown]
  - Dizziness [Unknown]
  - Pruritus [Unknown]
  - Hyperhidrosis [Unknown]
  - Hypoaesthesia oral [Unknown]
  - Erythema [Unknown]
  - Anaphylactic reaction [Unknown]
  - Paraesthesia oral [Unknown]
  - Nausea [Unknown]
